FAERS Safety Report 16360477 (Version 1)
Quarter: 2019Q2

REPORT INFORMATION
  Report Type: Spontaneous
  Country: JO (occurrence: JO)
  Receive Date: 20190528
  Receipt Date: 20190528
  Transmission Date: 20190711
  Serious: Yes (Other)
  Sender: FDA-Public Use
  Company Number: JO-BAYER-2019-101657

PATIENT
  Sex: Female

DRUGS (1)
  1. CLARITINE 10 MG [Suspect]
     Active Substance: LORATADINE
     Dosage: UNK

REACTIONS (3)
  - Dysarthria [None]
  - Arrhythmia [None]
  - Palpitations [None]
